FAERS Safety Report 15505603 (Version 1)
Quarter: 2018Q4

REPORT INFORMATION
  Report Type: Spontaneous
  Country: US (occurrence: US)
  Receive Date: 20181016
  Receipt Date: 20181016
  Transmission Date: 20190205
  Serious: Yes (Other)
  Sender: FDA-Public Use
  Company Number: US-APOTEX-2018AP022997

PATIENT
  Age: 51 Year
  Sex: Female

DRUGS (3)
  1. GABAPENTIN. [Suspect]
     Active Substance: GABAPENTIN
     Indication: POST BREAST THERAPY PAIN SYNDROME
     Dosage: UNK, UNKNOWN
     Route: 065
  2. PREGABALIN. [Suspect]
     Active Substance: PREGABALIN
     Indication: POST BREAST THERAPY PAIN SYNDROME
     Dosage: UNK, UNKNOWN
     Route: 065
  3. TIZANIDINE. [Suspect]
     Active Substance: TIZANIDINE
     Indication: POST BREAST THERAPY PAIN SYNDROME
     Dosage: UNK, UNKNOWN
     Route: 065

REACTIONS (3)
  - Sedation [Unknown]
  - Treatment failure [Unknown]
  - Confusional state [Unknown]
